FAERS Safety Report 9689455 (Version 1)
Quarter: 2013Q4

REPORT INFORMATION
  Report Type: Report from Study
  Country: CA (occurrence: CA)
  Receive Date: 20131114
  Receipt Date: 20131114
  Transmission Date: 20140711
  Serious: Yes (Death)
  Sender: FDA-Public Use
  Company Number: PHHY2013CA130222

PATIENT
  Age: 87 Year
  Sex: Female

DRUGS (5)
  1. ACLASTA [Suspect]
     Indication: OSTEOPOROSIS
     Dosage: UNK
     Route: 042
     Dates: start: 20081111
  2. ACLASTA [Suspect]
     Dosage: UNK
     Route: 042
     Dates: start: 20091124
  3. ACLASTA [Suspect]
     Dosage: UNK
     Route: 042
     Dates: start: 20101123
  4. ACLASTA [Suspect]
     Dosage: UNK
     Route: 042
     Dates: start: 20120209
  5. ACLASTA [Suspect]
     Dosage: UNK
     Route: 042
     Dates: start: 20130212

REACTIONS (1)
  - Death [Fatal]
